FAERS Safety Report 9160370 (Version 1)
Quarter: 2013Q1

REPORT INFORMATION
  Report Type: Spontaneous
  Country: None (occurrence: None)
  Receive Date: 20130219
  Receipt Date: 20130219
  Transmission Date: 20140127
  Serious: Yes (Hospitalization)
  Sender: FDA-Public Use
  Company Number: IPC201302-0000039

PATIENT
  Age: 63 Year
  Sex: Female

DRUGS (3)
  1. HYDROXYCHLOROQUIUNE SULFATE (HYDROXYCHLOROQUINE SULFATE) [Suspect]
     Indication: RHEUMATOID ARTHRITIS
     Dosage: 164 G CUMULATIVE DOSE - STOPPED
  2. FUROSEMIDE (FUROSEMIDE)(FUROSEMIDE) [Suspect]
  3. PREDNISOLONE [Concomitant]

REACTIONS (10)
  - Cardiomyopathy [None]
  - Pulmonary hypertension [None]
  - Aortic valve incompetence [None]
  - Mitral valve incompetence [None]
  - Tricuspid valve incompetence [None]
  - Atrioventricular block complete [None]
  - Drug ineffective [None]
  - Weight increased [None]
  - Heart rate decreased [None]
  - Cardiac murmur [None]
